FAERS Safety Report 4744134-0 (Version None)
Quarter: 2005Q3

REPORT INFORMATION
  Report Type: 
  Country: None (occurrence: None)
  Receive Date: 20050812
  Receipt Date: 20050803
  Transmission Date: 20060218
  Serious: Yes (Other)
  Sender: FDA-Public Use
  Company Number: PHEH2005US08638

PATIENT
  Age: 75 Year
  Sex: Female

DRUGS (3)
  1. ZOMETA [Suspect]
     Indication: BREAST CANCER
     Dates: start: 20030801, end: 20050401
  2. TAMOXIFEN CITRATE [Concomitant]
  3. AROMASIN [Concomitant]

REACTIONS (2)
  - ASEPTIC NECROSIS BONE [None]
  - OSTEONECROSIS [None]
